FAERS Safety Report 16390371 (Version 1)
Quarter: 2019Q2

REPORT INFORMATION
  Report Type: Spontaneous
  Country: US (occurrence: US)
  Receive Date: 20190604
  Receipt Date: 20190604
  Transmission Date: 20190711
  Serious: No
  Sender: FDA-Public Use
  Company Number: US-BRISTOL-MYERS SQUIBB COMPANY-BMS-2019-053005

PATIENT
  Sex: Female

DRUGS (1)
  1. GLUCOPHAGE XR [Suspect]
     Active Substance: METFORMIN HYDROCHLORIDE
     Indication: POLYCYSTIC OVARIES
     Dosage: 500 MILLIGRAM, BID
     Route: 048
     Dates: start: 2004

REACTIONS (4)
  - Tremor [Unknown]
  - Wrong technique in product usage process [Unknown]
  - Intentional underdose [Unknown]
  - Product use in unapproved indication [Unknown]
